FAERS Safety Report 7248582-9 (Version None)
Quarter: 2011Q1

REPORT INFORMATION
  Report Type: 
  Country: None (occurrence: None)
  Receive Date: 20110128
  Receipt Date: 20101217
  Transmission Date: 20110831
  Serious: Yes (Death)
  Sender: FDA-Public Use
  Company Number: SE-BAYER-2010-005974

PATIENT
  Sex: Female

DRUGS (4)
  1. ASPIRIN [Suspect]
  2. DICLOFENAC [Suspect]
     Indication: BACK PAIN
     Route: 051
  3. ACETAMINOPHEN [Concomitant]
     Indication: BACK PAIN
  4. DEXIBUPROFEN [Suspect]

REACTIONS (1)
  - OESOPHAGEAL HAEMORRHAGE [None]
